FAERS Safety Report 6121857-2 (Version None)
Quarter: 2009Q1

REPORT INFORMATION
  Report Type: 
  Country: None (occurrence: None)
  Receive Date: 20090317
  Receipt Date: 20090317
  Transmission Date: 20090719
  Serious: Yes (Life-Threatening, Hospitalization)
  Sender: FDA-Public Use
  Company Number: US-PFIZER INC-2009156972

PATIENT
  Sex: Female
  Weight: 71 kg

DRUGS (8)
  1. LIPITOR [Suspect]
     Indication: BLOOD CHOLESTEROL INCREASED
     Dosage: UNK
  2. METOPROLOL [Concomitant]
     Dosage: UNK
  3. LASIX [Concomitant]
     Dosage: 40 MG, UNK
  4. CARVEDILOL [Concomitant]
     Dosage: 6.25 MG, UNK
  5. LISINOPRIL [Concomitant]
     Dosage: UNK
  6. DETROL LA [Concomitant]
     Dosage: UNK
  7. PLAVIX [Concomitant]
     Dosage: 75 MG, UNK
  8. NAPROXEN [Concomitant]
     Dosage: UNK

REACTIONS (1)
  - MYOCARDIAL INFARCTION [None]
